FAERS Safety Report 5200317-7 (Version None)
Quarter: 2007Q1

REPORT INFORMATION
  Report Type: 
  Country: None (occurrence: None)
  Receive Date: 20070105
  Receipt Date: 20061128
  Transmission Date: 20070707
  Serious: Yes (Hospitalization, Other)
  Sender: FDA-Public Use
  Company Number: US-PFIZER INC-2006150633

PATIENT
  Sex: Female

DRUGS (3)
  1. CELEBREX [Suspect]
     Dates: start: 20000221, end: 20010323
  2. BEXTRA [Suspect]
     Dates: start: 20020101
  3. VIOXX [Suspect]
     Route: 048
     Dates: start: 20000101, end: 20010120

REACTIONS (6)
  - ASTHENIA [None]
  - CEREBROVASCULAR ACCIDENT [None]
  - DEEP VEIN THROMBOSIS [None]
  - PAIN [None]
  - PULMONARY EMBOLISM [None]
  - SWELLING [None]
